FAERS Safety Report 23102951 (Version 1)
Quarter: 2023Q4

REPORT INFORMATION
  Report Type: Spontaneous
  Country: US (occurrence: US)
  Receive Date: 20231025
  Receipt Date: 20231025
  Transmission Date: 20240110
  Serious: No
  Sender: FDA-Public Use
  Company Number: US-NOVAST LABORATORIES INC.-2023NOV000233

PATIENT

DRUGS (1)
  1. DEBLITANE [Suspect]
     Active Substance: NORETHINDRONE
     Indication: Contraception
     Dosage: 1 TABLET BY MOUTH ONCE DAILY
     Route: 048

REACTIONS (2)
  - Libido decreased [Unknown]
  - Weight loss poor [Unknown]
